FAERS Safety Report 9518924 (Version 1)
Quarter: 2013Q1

REPORT INFORMATION
  Report Type: Spontaneous
  Country: US (occurrence: None)
  Receive Date: 20130305
  Receipt Date: 20130305
  Transmission Date: 20140127
  Serious: Yes (Other)
  Sender: FDA-Public Use
  Company Number: 163-21880-11083007

PATIENT
  Age: 69 Year
  Sex: Female
  Weight: 102.2 kg

DRUGS (1)
  1. REVLIMID (LENALIDOMIDE) (25 MILLIGRAM, CAPSULES) [Suspect]
     Indication: PLASMA CELL MYELOMA
     Dosage: 25MG, 21 IN28 D, PO
     Route: 048
     Dates: start: 20110103

REACTIONS (6)
  - Skin atrophy [None]
  - Oedema peripheral [None]
  - Muscle spasms [None]
  - Contusion [None]
  - Dyspnoea [None]
  - Memory impairment [None]
